FAERS Safety Report 7242379-1 (Version None)
Quarter: 2011Q1

REPORT INFORMATION
  Report Type: 
  Country: None (occurrence: None)
  Receive Date: 20110125
  Receipt Date: 20110113
  Transmission Date: 20110831
  Serious: No
  Sender: FDA-Public Use
  Company Number: US-BIOGENIDEC-2010BI042800

PATIENT
  Age: 38 Year
  Sex: Female

DRUGS (6)
  1. AVONEX [Concomitant]
     Indication: MULTIPLE SCLEROSIS
     Route: 030
     Dates: start: 20060728
  2. AVONEX [Concomitant]
     Route: 030
     Dates: start: 20060228
  3. TYSABRI [Suspect]
     Indication: FACIAL BONES FRACTURE
     Route: 042
     Dates: start: 20080221
  4. TYSABRI [Suspect]
     Route: 042
     Dates: start: 20080221
  5. TYSABRI [Suspect]
     Indication: MULTIPLE SCLEROSIS
     Route: 042
     Dates: start: 20080221
  6. TYSABRI [Suspect]
     Indication: EXCORIATION
     Route: 042
     Dates: start: 20080221

REACTIONS (4)
  - EXCORIATION [None]
  - OPEN WOUND [None]
  - FALL [None]
  - FACIAL BONES FRACTURE [None]
